FAERS Safety Report 12146357 (Version 1)
Quarter: 2016Q1

REPORT INFORMATION
  Report Type: Spontaneous
  Country: US (occurrence: US)
  Receive Date: 20160304
  Receipt Date: 20160304
  Transmission Date: 20160526
  Serious: No
  Sender: FDA-Public Use
  Company Number: US-MYLANLABS-2016M1002040

PATIENT
  Age: 65 Year
  Sex: Female
  Weight: 104.31 kg

DRUGS (4)
  1. BUTRANS [Concomitant]
     Active Substance: BUPRENORPHINE
     Indication: PAIN
     Dosage: UNK
  2. NORCO [Concomitant]
     Active Substance: ACETAMINOPHEN\HYDROCODONE BITARTRATE
     Indication: PAIN
     Dosage: UNK
  3. LIDOCAINE PATCH [Suspect]
     Active Substance: LIDOCAINE
     Indication: OFF LABEL USE
     Dosage: 3 DF, QD, 12H ON 12H OFF
     Route: 003
     Dates: start: 201601, end: 201601
  4. LIDOCAINE PATCH [Suspect]
     Active Substance: LIDOCAINE
     Indication: FIBROMYALGIA
     Dosage: 3 DF, QD, 12H ON 12H OFF
     Route: 003
     Dates: start: 201601, end: 201601

REACTIONS (3)
  - Product quality issue [Recovered/Resolved]
  - Application site discomfort [Recovered/Resolved]
  - Product adhesion issue [Recovered/Resolved]

NARRATIVE: CASE EVENT DATE: 201601
